FAERS Safety Report 13997443 (Version 2)
Quarter: 2017Q4

REPORT INFORMATION
  Report Type: Spontaneous
  Country: US (occurrence: US)
  Receive Date: 20170921
  Receipt Date: 20171127
  Transmission Date: 20180321
  Serious: No
  Sender: FDA-Public Use
  Company Number: US-ASTRAZENECA-2017SE96287

PATIENT
  Sex: Male
  Weight: 83.9 kg

DRUGS (4)
  1. BENADRYL [Concomitant]
     Active Substance: DIPHENHYDRAMINE HYDROCHLORIDE
  2. JANUMET [Concomitant]
     Active Substance: METFORMIN HYDROCHLORIDE\SITAGLIPTIN PHOSPHATE
     Indication: TYPE 2 DIABETES MELLITUS
     Dosage: 1000 MG OF METFORMIN AND 50 MG OF SITAGLIPTIN PHOSPHATE, TWO TIMES A DAY
     Route: 048
     Dates: start: 201703
  3. BYDUREON [Suspect]
     Active Substance: EXENATIDE
     Indication: TYPE 2 DIABETES MELLITUS
     Route: 058
     Dates: start: 201708
  4. LOSARTAN. [Concomitant]
     Active Substance: LOSARTAN
     Route: 048

REACTIONS (11)
  - Administration site nodule [Unknown]
  - Weight decreased [Unknown]
  - Abdominal distension [Unknown]
  - Nausea [Unknown]
  - Decreased appetite [Unknown]
  - Intentional product misuse [Unknown]
  - Pruritus generalised [Unknown]
  - Gastrointestinal disorder [Unknown]
  - Disturbance in attention [Unknown]
  - Asthenia [Unknown]
  - Dyspepsia [Unknown]

NARRATIVE: CASE EVENT DATE: 201708
